FAERS Safety Report 26205978 (Version 1)
Quarter: 2025Q4

REPORT INFORMATION
  Report Type: Report from Study
  Country: US (occurrence: US)
  Receive Date: 20251229
  Receipt Date: 20251229
  Transmission Date: 20260117
  Serious: Yes (Other)
  Sender: ALEXION PHARMACEUTICALS
  Company Number: US-AstraZeneca-CH-01021277A

PATIENT
  Age: 14 Year
  Sex: Male
  Weight: 53.977 kg

DRUGS (4)
  1. TEZEPELUMAB [Suspect]
     Active Substance: TEZEPELUMAB
     Indication: Asthma
     Dosage: 210 MILLIGRAM, Q4W
     Dates: start: 20250707
  2. TEZEPELUMAB [Suspect]
     Active Substance: TEZEPELUMAB
  3. ALBUTEROL [Concomitant]
     Active Substance: ALBUTEROL
     Route: 065
  4. PREDNISONE [Concomitant]
     Active Substance: PREDNISONE
     Route: 065

REACTIONS (7)
  - COVID-19 [Unknown]
  - Cough [Unknown]
  - Injection site pain [Unknown]
  - Illness [Unknown]
  - Upper respiratory tract infection [Unknown]
  - Neutropenia [Unknown]
  - Dermatitis atopic [Unknown]
